FAERS Safety Report 17136827 (Version 11)
Quarter: 2021Q4

REPORT INFORMATION
  Report Type: Report from Study
  Country: IN (occurrence: IN)
  Receive Date: 20191210
  Receipt Date: 20211028
  Transmission Date: 20220303
  Serious: Yes (Hospitalization)
  Sender: FDA-Public Use
  Company Number: PHHY2016IN119198

PATIENT
  Age: 30 Year
  Sex: Male

DRUGS (54)
  1. SECUKINUMAB [Suspect]
     Active Substance: SECUKINUMAB
     Indication: Psoriatic arthropathy
     Dosage: 150 MG, UNKNOWN
     Route: 058
     Dates: start: 20160823
  2. SECUKINUMAB [Suspect]
     Active Substance: SECUKINUMAB
     Indication: Psoriasis
     Dosage: 150 MG, UNKNOWN
     Route: 058
     Dates: start: 20160830
  3. SECUKINUMAB [Suspect]
     Active Substance: SECUKINUMAB
     Dosage: 150 MG, UNKNOWN
     Route: 058
     Dates: start: 20160906
  4. SECUKINUMAB [Suspect]
     Active Substance: SECUKINUMAB
     Dosage: 150 MG, UNKNOWN
     Route: 058
     Dates: start: 20161212
  5. SECUKINUMAB [Suspect]
     Active Substance: SECUKINUMAB
     Dosage: 150 MG, UNKNOWN
     Route: 058
     Dates: start: 20170110
  6. SECUKINUMAB [Suspect]
     Active Substance: SECUKINUMAB
     Dosage: 150 MG, UNKNOWN
     Route: 058
     Dates: start: 20170215
  7. SECUKINUMAB [Suspect]
     Active Substance: SECUKINUMAB
     Dosage: 150 MG, UNKNOWN
     Route: 058
     Dates: start: 20170414
  8. SECUKINUMAB [Suspect]
     Active Substance: SECUKINUMAB
     Dosage: 150 MG, UNKNOWN
     Route: 058
     Dates: start: 20170816
  9. SECUKINUMAB [Suspect]
     Active Substance: SECUKINUMAB
     Dosage: UNK
     Route: 065
     Dates: start: 20180205
  10. SECUKINUMAB [Suspect]
     Active Substance: SECUKINUMAB
     Dosage: 150 MG, QMO
     Route: 058
     Dates: start: 20180312
  11. SECUKINUMAB [Suspect]
     Active Substance: SECUKINUMAB
     Dosage: UNK
     Route: 065
     Dates: start: 20180607
  12. SECUKINUMAB [Suspect]
     Active Substance: SECUKINUMAB
     Dosage: UNK
     Route: 065
     Dates: start: 20180802
  13. SECUKINUMAB [Suspect]
     Active Substance: SECUKINUMAB
     Dosage: 150 MG, QMO
     Route: 058
     Dates: start: 20190105
  14. SECUKINUMAB [Suspect]
     Active Substance: SECUKINUMAB
     Dosage: 150 MG, QMO
     Route: 058
     Dates: start: 20190306
  15. SECUKINUMAB [Suspect]
     Active Substance: SECUKINUMAB
     Dosage: UNK
     Route: 065
     Dates: start: 20190502
  16. SECUKINUMAB [Suspect]
     Active Substance: SECUKINUMAB
     Dosage: 150 MG, QMO
     Route: 058
     Dates: start: 20190720
  17. SECUKINUMAB [Suspect]
     Active Substance: SECUKINUMAB
     Dosage: 150 MG, QMO
     Route: 058
     Dates: start: 20190922
  18. SECUKINUMAB [Suspect]
     Active Substance: SECUKINUMAB
     Dosage: 150 MG, QMO
     Route: 058
     Dates: start: 20190924
  19. SECUKINUMAB [Suspect]
     Active Substance: SECUKINUMAB
     Dosage: 300 MG, QMO
     Route: 058
     Dates: start: 20191102
  20. SECUKINUMAB [Suspect]
     Active Substance: SECUKINUMAB
     Dosage: 150 MG, QMO
     Route: 065
     Dates: start: 20191202
  21. SECUKINUMAB [Suspect]
     Active Substance: SECUKINUMAB
     Dosage: 150 MG, QMO
     Route: 058
     Dates: start: 20191205
  22. SECUKINUMAB [Suspect]
     Active Substance: SECUKINUMAB
     Dosage: 150 MG, QMO
     Route: 058
     Dates: start: 20200121
  23. SECUKINUMAB [Suspect]
     Active Substance: SECUKINUMAB
     Dosage: 150 MG, QMO
     Route: 058
     Dates: start: 20200221
  24. SECUKINUMAB [Suspect]
     Active Substance: SECUKINUMAB
     Dosage: 150 MG, QMO
     Route: 058
     Dates: start: 20200403
  25. SECUKINUMAB [Suspect]
     Active Substance: SECUKINUMAB
     Dosage: 150 MG, QMO
     Route: 058
     Dates: start: 20200501
  26. SECUKINUMAB [Suspect]
     Active Substance: SECUKINUMAB
     Dosage: 150 MG, QMO
     Route: 058
     Dates: start: 20200604
  27. SECUKINUMAB [Suspect]
     Active Substance: SECUKINUMAB
     Dosage: 150 MG, QMO
     Route: 058
     Dates: start: 20200627
  28. SECUKINUMAB [Suspect]
     Active Substance: SECUKINUMAB
     Dosage: 150 MG, QMO
     Route: 058
     Dates: start: 20200708
  29. SECUKINUMAB [Suspect]
     Active Substance: SECUKINUMAB
     Dosage: 150 MG, QMO
     Route: 058
     Dates: start: 20200709
  30. SECUKINUMAB [Suspect]
     Active Substance: SECUKINUMAB
     Dosage: 150 MG, QMO
     Route: 065
     Dates: start: 20200902
  31. SECUKINUMAB [Suspect]
     Active Substance: SECUKINUMAB
     Dosage: 150 UNK, QMO
     Route: 058
     Dates: start: 20201021
  32. SECUKINUMAB [Suspect]
     Active Substance: SECUKINUMAB
     Dosage: 150 MG, QMO
     Route: 058
     Dates: start: 20201119
  33. SECUKINUMAB [Suspect]
     Active Substance: SECUKINUMAB
     Dosage: 150 MG, QMO
     Route: 058
     Dates: start: 20210116
  34. SECUKINUMAB [Suspect]
     Active Substance: SECUKINUMAB
     Dosage: 150 MG, QMO (CURRENT DOSE)
     Route: 058
     Dates: start: 20210915
  35. METHOTREXATE SODIUM [Concomitant]
     Active Substance: METHOTREXATE SODIUM
     Indication: Product used for unknown indication
     Dosage: 25 MG, QW (AFTER DINNER WEEKLY FOR ONE MONTH)
     Route: 065
  36. METHOTREXATE [Concomitant]
     Active Substance: METHOTREXATE
     Indication: Product used for unknown indication
     Dosage: 25 MG, QW
     Route: 030
  37. FOLVITE [Concomitant]
     Active Substance: FOLIC ACID
     Indication: Product used for unknown indication
     Dosage: 5 MG (MONDAY, WEDNESDAY AND FRIDAY)
     Route: 065
  38. CALCIUM CARBONATE\CHOLECALCIFEROL [Concomitant]
     Active Substance: CALCIUM CARBONATE\CHOLECALCIFEROL
     Indication: Product used for unknown indication
     Dosage: UNK
     Route: 065
  39. CALCIORAL [Concomitant]
     Indication: Product used for unknown indication
     Dosage: UNK
     Route: 065
  40. SOLU-MEDROL [Concomitant]
     Active Substance: METHYLPREDNISOLONE SODIUM SUCCINATE
     Indication: Product used for unknown indication
     Dosage: 125 MG (STAT)
     Route: 030
  41. ETOSHINE [Concomitant]
     Indication: Pain
     Dosage: 90 MG, PRN
     Route: 065
  42. PANTOCID [Concomitant]
     Indication: Flatulence
     Dosage: 40 MG, PRN
     Route: 065
  43. APREMILAST [Concomitant]
     Active Substance: APREMILAST
     Indication: Product used for unknown indication
     Dosage: 10 MG, QD (ON FIRST DAY)
     Route: 065
  44. APREMILAST [Concomitant]
     Active Substance: APREMILAST
     Dosage: 10 MG, BID (ON SECOND DAY)
     Route: 065
  45. APREMILAST [Concomitant]
     Active Substance: APREMILAST
     Dosage: 30 MG (IN THE MORNING AND 20MG IN THE EVENING ON THIRD DAY)
     Route: 065
  46. APREMILAST [Concomitant]
     Active Substance: APREMILAST
     Dosage: 20 MG, BID (ON FOURTH DAY)
     Route: 065
  47. APREMILAST [Concomitant]
     Active Substance: APREMILAST
     Dosage: 50 MG (20MG MORNING AND 30 MG EVENING ON 5TH DAY)
     Route: 065
  48. APREMILAST [Concomitant]
     Active Substance: APREMILAST
     Dosage: 30 MG, BID (ON SIXTH DAY)
     Route: 065
  49. APRAZO [Concomitant]
     Indication: Product used for unknown indication
     Dosage: 10 MG, QD (DAY 1)
     Route: 065
  50. APRAZO [Concomitant]
     Dosage: 10 MG, QD (DAY 2)
     Route: 065
  51. APRAZO [Concomitant]
     Dosage: 20 MG, BID (10 MG IN THE MORNING AND 20 MG IN THE EVENING)
     Route: 065
  52. APRAZO [Concomitant]
     Dosage: 20 MG, BID(MORNING AND EVENING)
     Route: 065
  53. APRAZO [Concomitant]
     Dosage: 20 MG, BID (20 MG IN THE MORNING AND 30 MG IN THE EVENING)
     Route: 065
  54. APRAZO [Concomitant]
     Dosage: 30 MG, BID(MORNING AND EVENING)
     Route: 065

REACTIONS (29)
  - Malaise [Unknown]
  - Oedema peripheral [Not Recovered/Not Resolved]
  - Psoriasis [Not Recovered/Not Resolved]
  - Skin exfoliation [Not Recovered/Not Resolved]
  - Pruritus [Not Recovered/Not Resolved]
  - Pain of skin [Recovering/Resolving]
  - Pain [Not Recovered/Not Resolved]
  - Joint effusion [Recovering/Resolving]
  - Skin irritation [Unknown]
  - Erythema [Unknown]
  - Arthralgia [Not Recovered/Not Resolved]
  - Stress [Not Recovered/Not Resolved]
  - Gait disturbance [Not Recovered/Not Resolved]
  - Dysstasia [Not Recovered/Not Resolved]
  - Asthenia [Not Recovered/Not Resolved]
  - Nasopharyngitis [Recovered/Resolved]
  - Pyrexia [Recovered/Resolved]
  - Oropharyngeal pain [Recovering/Resolving]
  - Musculoskeletal stiffness [Unknown]
  - Arthropathy [Unknown]
  - Decreased immune responsiveness [Unknown]
  - Skin discomfort [Unknown]
  - Insomnia [Unknown]
  - C-reactive protein increased [Unknown]
  - Red blood cell sedimentation rate increased [Unknown]
  - Joint swelling [Unknown]
  - Prescribed underdose [Unknown]
  - Inappropriate schedule of product administration [Unknown]
  - Drug ineffective [Unknown]

NARRATIVE: CASE EVENT DATE: 20160823
